FAERS Safety Report 4995353-X (Version None)
Quarter: 2006Q2

REPORT INFORMATION
  Report Type: 
  Country: None (occurrence: None)
  Receive Date: 20060508
  Receipt Date: 20050301
  Transmission Date: 20061013
  Serious: Yes (Death, Other)
  Sender: FDA-Public Use
  Company Number: DE-BRISTOL-MYERS SQUIBB COMPANY-13349378

PATIENT
  Sex: Male
  Weight: 80 kg

DRUGS (19)
  1. SUSTIVA [Suspect]
  2. ZERIT [Suspect]
  3. VIDEX [Suspect]
  4. LITALIR [Suspect]
  5. ZIDOVUDINE [Concomitant]
     Indication: HIV INFECTION
     Dosage: -NOV93, DEC-93-AUG-05, SEP-95 TO MAY-96, JUN-96 TO JUL-96, NOV-99 TO APR-00
     Dates: start: 19901101, end: 20000401
  6. ZALCITABINE [Concomitant]
     Indication: HIV INFECTION
     Dates: start: 19931201, end: 19950801
  7. LAMIVUDINE [Concomitant]
     Indication: HIV INFECTION
     Dosage: -MAY96, JUN96-JUL96, NOV99-APR00, FEB01-APR01, APR01-NOV01, APR04(4DAY), MAY02-OCT-02, APR-03-OCT03
     Dates: start: 19950901, end: 20030701
  8. INDINIVIR SULFATE [Concomitant]
     Indication: HIV INFECTION
     Dosage: -JUL-96, AUG-96-MAR-97, NOV-99 TO APR-00
     Dates: start: 19960601, end: 20000401
  9. NELFINAVIR [Concomitant]
     Indication: HIV INFECTION
     Dates: start: 19970401, end: 19980201
  10. SAQUINAVIR [Concomitant]
     Indication: HIV INFECTION
     Dosage: -FEB-98, MAR-98-MAY-99, FEB-01-APR-01, APR-01-NOV-01, NOV-01-UNK, APR-02 4D/TOTAL MAY-02-OCT-02
     Dates: start: 19970401, end: 20031001
  11. ABACAVIR [Concomitant]
     Indication: HIV INFECTION
     Dosage: AUG-99, NOV-99 TO APR-00, APR-01 TO NOV-01, NOV-O1 TO UNK, APR-02 (4 DAYS TOTAL)
     Dates: start: 19990601, end: 20020401
  12. AMPRENAVIR [Concomitant]
     Indication: HIV INFECTION
     Dosage: JUN-99 TO AUG-99, NOV-99 TO APR-00, AUG-00-FEB-01
     Dates: start: 19990601, end: 20010201
  13. LOPINAVIR [Concomitant]
     Indication: HIV INFECTION
     Dosage: FEB-01-APR-01, APR-01-NOV-01, NOV-01-UNK, APR-02 FOR 4 DAYS TOTAL, MAY-02-OCT-03, APR-03-JUL-03.
     Dates: start: 20020801, end: 20030701
  14. ENFUVIRTIDE [Concomitant]
     Indication: HIV INFECTION
     Dates: start: 20020501, end: 20021001
  15. TENOFOVIR [Concomitant]
     Indication: HIV INFECTION
     Dosage: STOPPED OCT-2002, RESTARTED APR-2003, STOPPED JUL-2003, RESTARTED JUL-2003
     Dates: start: 20020501, end: 20030101
  16. TIPRANAVIR [Concomitant]
     Indication: HIV INFECTION
     Dates: start: 20030701, end: 20030101
  17. DELAVIRDINE [Concomitant]
     Indication: HIV INFECTION
     Dosage: STOPPED IN JUL-2003 RESTARTED JUL-2003
     Dates: start: 20030401, end: 20030101
  18. LOPINAVIR + RITONAVIR [Concomitant]
     Indication: HIV INFECTION
     Dates: start: 20031001
  19. RITONAVIR [Concomitant]
     Indication: HIV INFECTION
     Dosage: APR00 AUG00/FEB01 FEB01/APR01 APR01/NOV01 NOV-01/UNK APR-01(4 DAYS TOTAL) MAY02/OCT02, OCT03/APR03
     Dates: start: 19991101, end: 20030701

REACTIONS (17)
  - ACUTE RESPIRATORY DISTRESS SYNDROME [None]
  - CONJUNCTIVITIS [None]
  - DEATH [None]
  - DRUG RESISTANCE [None]
  - HEPATITIS TOXIC [None]
  - INTERSTITIAL LUNG DISEASE [None]
  - LEUKOPENIA [None]
  - MALAISE [None]
  - OESOPHAGEAL CANDIDIASIS [None]
  - OTITIS MEDIA CHRONIC [None]
  - PNEUMOCYSTIS JIROVECI PNEUMONIA [None]
  - PSEUDOMONAS INFECTION [None]
  - PYREXIA [None]
  - RASH [None]
  - SINUSITIS [None]
  - STEVENS-JOHNSON SYNDROME [None]
  - TUBERCULOSIS [None]
